FAERS Safety Report 11481279 (Version 3)
Quarter: 2015Q4

REPORT INFORMATION
  Report Type: Spontaneous
  Country: JP (occurrence: JP)
  Receive Date: 20150909
  Receipt Date: 20151217
  Transmission Date: 20160304
  Serious: Yes (Life-Threatening, Other)
  Sender: FDA-Public Use
  Company Number: JP-009507513-1509JPN002156

PATIENT
  Age: 85 Year
  Sex: Male
  Weight: 47 kg

DRUGS (5)
  1. DESFLURANE. [Concomitant]
     Active Substance: DESFLURANE
     Indication: ANAESTHESIA PROCEDURE
     Dosage: DAILY DOSAGE UNKNOWN
     Route: 039
     Dates: start: 20150831, end: 20150831
  2. ESLAX INTRAVENOUS 25MG/2.5ML [Suspect]
     Active Substance: ROCURONIUM BROMIDE
     Dosage: 1 MG/KG BOLUS ADMINISTRATION
     Route: 042
     Dates: start: 20150831, end: 20150831
  3. BRIDION [Suspect]
     Active Substance: SUGAMMADEX
     Indication: NEUROMUSCULAR BLOCKADE REVERSAL
     Dosage: 4 MG/KG BOLUS ADMINISTRATION
     Route: 042
     Dates: start: 20150831, end: 20150831
  4. ESLAX INTRAVENOUS 25MG/2.5ML [Suspect]
     Active Substance: ROCURONIUM BROMIDE
     Indication: NEUROMUSCULAR BLOCKING THERAPY
     Dosage: 7 MICRO-G/KG/MIN CONTINUOUS ADMINISTRATION
     Route: 042
     Dates: start: 20150831, end: 20150831
  5. BLOOD CELLS, RED [Concomitant]
     Active Substance: HUMAN BLOOD CELLS
     Dosage: 2 X UNDER 1000UNIT, 1 DAY (DIVIDED DOSE FREQUENCY UNKNOWN)
     Route: 051
     Dates: start: 20150830, end: 20150830

REACTIONS (3)
  - Underdose [Unknown]
  - Recurrence of neuromuscular blockade [Recovered/Resolved]
  - Wrong technique in product usage process [Unknown]

NARRATIVE: CASE EVENT DATE: 20150831
